FAERS Safety Report 8872690 (Version 1)
Quarter: 2012Q4

REPORT INFORMATION
  Report Type: Report from Study
  Country: BR (occurrence: BR)
  Receive Date: 20121030
  Receipt Date: 20121030
  Transmission Date: 20130627
  Serious: Yes (Other)
  Sender: FDA-Public Use
  Company Number: BR-ROCHE-1150271

PATIENT
  Age: 67 Year
  Sex: Male
  Weight: 81 kg

DRUGS (6)
  1. LEUCOVORIN [Concomitant]
     Indication: COLON CANCER METASTATIC
     Dosage: lasted in 8 weeks
     Route: 065
  2. OXALIPLATIN [Concomitant]
     Indication: COLON CANCER METASTATIC
     Dosage: lasted in 8 weeks
     Route: 065
  3. IRINOTECAN [Concomitant]
     Indication: COLON CANCER METASTATIC
     Dosage: 4 cycles received
     Route: 065
  4. BEVACIZUMAB [Suspect]
     Indication: COLON CANCER METASTATIC
     Dosage: 12 infusions
     Route: 065
     Dates: start: 20111107, end: 20120507
  5. BEVACIZUMAB [Suspect]
     Dosage: 4 infusions recieved
     Route: 065
     Dates: start: 20120806
  6. FLUOROURACIL [Concomitant]
     Indication: COLON CANCER METASTATIC
     Dosage: chemo lasted in 8 weeks
     Route: 065

REACTIONS (1)
  - Disease progression [Unknown]
